FAERS Safety Report 12110500 (Version 2)
Quarter: 2016Q1

REPORT INFORMATION
  Report Type: Spontaneous
  Country: US (occurrence: US)
  Receive Date: 20160224
  Receipt Date: 20160318
  Transmission Date: 20160526
  Serious: Yes (Death, Other)
  Sender: FDA-Public Use
  Company Number: US-PFIZER INC-2016097362

PATIENT
  Age: 15 Year
  Sex: Male
  Weight: 52.5 kg

DRUGS (7)
  1. MORPHINE SULFATE. [Suspect]
     Active Substance: MORPHINE SULFATE
     Dosage: 0.5 MG, CYCLIC (0.5 MG PER HOUR)
     Route: 041
  2. CODEINE [Concomitant]
     Active Substance: CODEINE
     Dosage: 120 MG, UNK (1 1/2 HOURS PREVIOUSLY)
  3. MORPHINE SULFATE. [Suspect]
     Active Substance: MORPHINE SULFATE
     Dosage: 20 MG, UNK (FOR 11 HOURS)
     Route: 058
  4. MORPHINE SULFATE. [Suspect]
     Active Substance: MORPHINE SULFATE
     Dosage: 6 MG, CYCLIC (6 MG/HR)
  5. CODEINE [Concomitant]
     Active Substance: CODEINE
     Indication: BACK PAIN
     Dosage: 60 MG, UNK (4 HOURS PREVIOUSLY)
  6. MORPHINE SULFATE. [Suspect]
     Active Substance: MORPHINE SULFATE
     Dosage: 3 MG, UNK
     Route: 042
  7. MEPERIDINE [Concomitant]
     Active Substance: MEPERIDINE
     Dosage: 160 MG, UNK

REACTIONS (5)
  - Cardio-respiratory arrest [Fatal]
  - Sickle cell anaemia with crisis [Unknown]
  - Overdose [Fatal]
  - Condition aggravated [Unknown]
  - Respiratory depression [Unknown]
